FAERS Safety Report 5191832-3 (Version None)
Quarter: 2006Q4

REPORT INFORMATION
  Report Type: 
  Country: None (occurrence: None)
  Receive Date: 20061220
  Receipt Date: 20061207
  Transmission Date: 20070319
  Serious: Yes (Death)
  Sender: FDA-Public Use
  Company Number: OXER20060086

PATIENT
  Age: 3 Year
  Sex: Female

DRUGS (1)
  1. OXYCODONE HCL [Suspect]
     Indication: DRUG USE FOR UNKNOWN INDICATION
     Dates: start: 20050101, end: 20050101

REACTIONS (4)
  - ANOXIC ENCEPHALOPATHY [None]
  - DRUG LEVEL INCREASED [None]
  - LOSS OF CONSCIOUSNESS [None]
  - RESPIRATORY ARREST [None]
